FAERS Safety Report 10952845 (Version 1)
Quarter: 2015Q1

REPORT INFORMATION
  Report Type: Spontaneous
  Country: US (occurrence: None)
  Receive Date: 20150324
  Receipt Date: 20150324
  Transmission Date: 20150721
  Serious: Yes (Other)
  Sender: FDA-Public Use
  Company Number: None

PATIENT
  Age: 53 Year
  Sex: Female
  Weight: 113.4 kg

DRUGS (11)
  1. BENICAR WITH HCTZ [Concomitant]
  2. XANAX [Concomitant]
     Active Substance: ALPRAZOLAM
  3. HYSINGLA ER [Suspect]
     Active Substance: HYDROCODONE BITARTRATE
  4. VITA BRIGHTENING RENEWAL MASK [Concomitant]
     Active Substance: WITCH HAZEL
  5. GRALISE [Concomitant]
     Active Substance: GABAPENTIN
  6. VICODIN [Concomitant]
     Active Substance: ACETAMINOPHEN\HYDROCODONE BITARTRATE
  7. METAXALONE. [Concomitant]
     Active Substance: METAXALONE
  8. COLACE [Concomitant]
     Active Substance: DOCUSATE SODIUM
  9. CYMBALTA [Concomitant]
     Active Substance: DULOXETINE HYDROCHLORIDE
  10. MIRALAX [Concomitant]
     Active Substance: POLYETHYLENE GLYCOL 3350
  11. BISCODLY [Concomitant]

REACTIONS (7)
  - Laceration [None]
  - Rectal fissure [None]
  - Fall [None]
  - Limb injury [None]
  - Joint injury [None]
  - Face injury [None]
  - Constipation [None]

NARRATIVE: CASE EVENT DATE: 20150317
